FAERS Safety Report 25779318 (Version 2)
Quarter: 2025Q3

REPORT INFORMATION
  Report Type: Report from Study
  Country: US (occurrence: US)
  Receive Date: 20250909
  Receipt Date: 20250930
  Transmission Date: 20251021
  Serious: Yes (Other)
  Sender: ABBVIE
  Company Number: US-ABBVIE-6438405

PATIENT
  Age: 67 Year
  Sex: Female

DRUGS (1)
  1. RINVOQ [Suspect]
     Active Substance: UPADACITINIB
     Indication: Crohn^s disease
     Route: 048
     Dates: start: 202501, end: 2025

REACTIONS (7)
  - Intestinal obstruction [Recovered/Resolved]
  - Drug effect less than expected [Unknown]
  - Abdominal pain upper [Not Recovered/Not Resolved]
  - Anal fistula [Not Recovered/Not Resolved]
  - Diarrhoea [Not Recovered/Not Resolved]
  - Anal fistula infection [Not Recovered/Not Resolved]
  - Anal haemorrhage [Not Recovered/Not Resolved]

NARRATIVE: CASE EVENT DATE: 20250101
